FAERS Safety Report 5042002-0 (Version None)
Quarter: 2006Q2

REPORT INFORMATION
  Report Type: 
  Country: None (occurrence: None)
  Receive Date: 20060627
  Receipt Date: 20060615
  Transmission Date: 20061013
  Serious: Yes (Death)
  Sender: FDA-Public Use
  Company Number: SPV1-2006-00078

PATIENT
  Age: 72 Year
  Sex: Female

DRUGS (24)
  1. FOSRENOL [Suspect]
     Indication: HYPERPHOSPHATAEMIA
     Dosage: 1000 MG 3X/DAY TID
     Dates: start: 20050311, end: 20050713
  2. RENAGEL [Concomitant]
  3. NEPRHOCAPS (SEE IMAGE) [Concomitant]
  4. LOPID [Concomitant]
  5. LEVOTHROID [Concomitant]
  6. ZANTAC [Concomitant]
  7. LIPITOR [Concomitant]
  8. PLENDIL [Concomitant]
  9. PRINIVIL [Concomitant]
  10. LOPRESSOR [Concomitant]
  11. ASPIRIN [Concomitant]
  12. CALCIUM CARBONATE [Concomitant]
  13. BENADRYL (PHENYLPROPANOLAMINE HYDROCHLORIDE, DIPHENHYDRAMINE) [Concomitant]
  14. PHOSLO [Concomitant]
  15. SYNTHROID [Concomitant]
  16. EPOGEN [Concomitant]
  17. CALCIJEX(CALCITROL) [Concomitant]
  18. CYTOMEL (LIOTHYROXONINE SODIUM) [Concomitant]
  19. ZANTAC [Concomitant]
  20. ATARAX [Concomitant]
  21. NEURONTIN [Concomitant]
  22. MOTRIN [Concomitant]
  23. LOMOTIL [Concomitant]
  24. HECTOROL [Concomitant]

REACTIONS (12)
  - ACIDOSIS [None]
  - BLOOD BICARBONATE DECREASED [None]
  - BLOOD GLUCOSE DECREASED [None]
  - BLOOD PRESSURE DECREASED [None]
  - BODY TEMPERATURE INCREASED [None]
  - CARDIAC ARREST [None]
  - CELLULITIS [None]
  - EJECTION FRACTION DECREASED [None]
  - PLEURAL EFFUSION [None]
  - RECTAL HAEMORRHAGE [None]
  - VENTRICULAR FIBRILLATION [None]
  - VENTRICULAR TACHYCARDIA [None]
